FAERS Safety Report 9967741 (Version 1)
Quarter: 2014Q1

REPORT INFORMATION
  Report Type: Report from Study
  Country: US (occurrence: US)
  Receive Date: 20140306
  Receipt Date: 20140306
  Transmission Date: 20141002
  Serious: No
  Sender: FDA-Public Use
  Company Number: US-ABBVIE-13P-163-1138240-00

PATIENT
  Age: 67 Year
  Sex: Male

DRUGS (14)
  1. HUMIRA [Suspect]
     Indication: ANKYLOSING SPONDYLITIS
     Dates: start: 201307
  2. HYDROCODONE [Concomitant]
     Indication: ARTHRALGIA
     Dosage: 5-325MG EVERY 6 HOURS AS NEEDED
  3. BUPROPION [Concomitant]
     Indication: EX-TOBACCO USER
     Dosage: 3 TABLETS DAILY
  4. BENADRYL [Concomitant]
     Indication: INSOMNIA
     Dosage: AS NEEDED AT BEDTIME
  5. METOPROLOL [Concomitant]
     Indication: HYPERTENSION
  6. SYMBICORT [Concomitant]
     Indication: CHRONIC OBSTRUCTIVE PULMONARY DISEASE
     Dosage: IN THE AM AND PM
  7. DICLOFENAC [Concomitant]
     Indication: ANKYLOSING SPONDYLITIS
     Dosage: 1 TABLET IN THE AM, 1 IN THE PM
  8. CRESTOR [Concomitant]
     Indication: BLOOD CHOLESTEROL INCREASED
     Dosage: AT BEDTIME
  9. PREDNISONE [Concomitant]
     Indication: EYE INFLAMMATION
     Dosage: EYE DROPS
     Route: 047
  10. AMLODIPINE [Concomitant]
     Indication: HYPERTENSION
  11. NITRO [Concomitant]
     Indication: CHEST PAIN
     Route: 060
  12. FLUTICASONE [Concomitant]
     Indication: CHRONIC OBSTRUCTIVE PULMONARY DISEASE
     Dosage: NOSTRIL SPRAY (RESCUE INHALER)
  13. ALBUTEROL [Concomitant]
     Indication: CHRONIC OBSTRUCTIVE PULMONARY DISEASE
     Dosage: RESCUE INHALER
  14. ECOTRIN [Concomitant]
     Indication: PRODUCT USED FOR UNKNOWN INDICATION

REACTIONS (4)
  - Fatigue [Recovering/Resolving]
  - Productive cough [Recovering/Resolving]
  - Nasal congestion [Recovering/Resolving]
  - Inappropriate schedule of drug administration [Unknown]
